FAERS Safety Report 7316141-5 (Version None)
Quarter: 2011Q1

REPORT INFORMATION
  Report Type: 
  Country: None (occurrence: None)
  Receive Date: 20110225
  Receipt Date: 20110216
  Transmission Date: 20110831
  Serious: Yes (Hospitalization, Other)
  Sender: FDA-Public Use
  Company Number: FR-B.I. PHARMACEUTICALS,INC./RIDGEFIELD-2010-FF-01075FF

PATIENT
  Sex: Male

DRUGS (1)
  1. TAMSULOSIN HCL [Suspect]
     Indication: BENIGN PROSTATIC HYPERPLASIA
     Dosage: 0.4 MG
     Route: 048
     Dates: start: 20101119, end: 20101126

REACTIONS (4)
  - SYNCOPE [None]
  - ATRIOVENTRICULAR BLOCK FIRST DEGREE [None]
  - URINARY INCONTINENCE [None]
  - EYE MOVEMENT DISORDER [None]
